FAERS Safety Report 13363212 (Version 2)
Quarter: 2017Q2

REPORT INFORMATION
  Report Type: Spontaneous
  Country: US (occurrence: US)
  Receive Date: 20170323
  Receipt Date: 20170512
  Transmission Date: 20170830
  Serious: Yes (Other)
  Sender: FDA-Public Use
  Company Number: US-ELI_LILLY_AND_COMPANY-US201703005981

PATIENT
  Age: 9 Year
  Sex: Female
  Weight: 28 kg

DRUGS (6)
  1. STRATTERA [Suspect]
     Active Substance: ATOMOXETINE HYDROCHLORIDE
     Indication: AFFECT LABILITY
     Dosage: 18 MG, UNKNOWN
  2. VYVANSE [Concomitant]
     Active Substance: LISDEXAMFETAMINE DIMESYLATE
     Dosage: 40 MG, UNK
     Route: 065
     Dates: start: 201612
  3. STRATTERA [Suspect]
     Active Substance: ATOMOXETINE HYDROCHLORIDE
     Dosage: 25 MG, UNKNOWN
     Route: 065
  4. STRATTERA [Suspect]
     Active Substance: ATOMOXETINE HYDROCHLORIDE
     Dosage: 40 MG, UNKNOWN
     Route: 048
  5. VYVANSE [Concomitant]
     Active Substance: LISDEXAMFETAMINE DIMESYLATE
     Indication: ATTENTION DEFICIT/HYPERACTIVITY DISORDER
     Dosage: 20 MG, UNKNOWN
     Route: 065
  6. STRATTERA [Suspect]
     Active Substance: ATOMOXETINE HYDROCHLORIDE
     Indication: ATTENTION DEFICIT/HYPERACTIVITY DISORDER
     Dosage: 10 MG, UNKNOWN
     Route: 048
     Dates: start: 20170209

REACTIONS (1)
  - Suicidal ideation [Recovered/Resolved]

NARRATIVE: CASE EVENT DATE: 20170216
